FAERS Safety Report 14821177 (Version 6)
Quarter: 2018Q3

REPORT INFORMATION
  Report Type: Report from Study
  Country: FI (occurrence: FI)
  Receive Date: 20180427
  Receipt Date: 20180716
  Transmission Date: 20181010
  Serious: Yes (Hospitalization)
  Sender: FDA-Public Use
  Company Number: FI-EISAI MEDICAL RESEARCH-EC-2018-038723

PATIENT
  Age: 62 Year
  Sex: Male
  Weight: 74 kg

DRUGS (9)
  1. LENVATINIB [Suspect]
     Active Substance: LENVATINIB
     Dosage: DOSE REDUCED
     Route: 048
     Dates: start: 20180424, end: 20180610
  2. LENVATINIB [Suspect]
     Active Substance: LENVATINIB
     Indication: RENAL CELL CARCINOMA
     Dosage: 18 MG OR 14 MG DAILY
     Route: 048
     Dates: start: 20180313, end: 20180420
  3. PRIMASPAN [Concomitant]
     Active Substance: ASPIRIN
  4. EVEROLIMUS. [Suspect]
     Active Substance: EVEROLIMUS
     Indication: RENAL CELL CARCINOMA
     Route: 048
     Dates: start: 20180313, end: 201804
  5. LOPERAMIDE [Concomitant]
     Active Substance: LOPERAMIDE
  6. BISOPROLOL [Concomitant]
     Active Substance: BISOPROLOL
  7. PIPERACILLIN [Concomitant]
     Active Substance: PIPERACILLIN
  8. EVEROLIMUS. [Suspect]
     Active Substance: EVEROLIMUS
     Route: 048
     Dates: start: 20180424, end: 20180610
  9. ORBEOS [Concomitant]
     Active Substance: ATORVASTATIN CALCIUM

REACTIONS (3)
  - Pneumonia [Recovered/Resolved]
  - Vomiting [Recovered/Resolved]
  - Diarrhoea [Recovered/Resolved]

NARRATIVE: CASE EVENT DATE: 20180420
